FAERS Safety Report 8255122-4 (Version None)
Quarter: 2012Q2

REPORT INFORMATION
  Report Type: 
  Country: None (occurrence: None)
  Receive Date: 20120403
  Receipt Date: 20120319
  Transmission Date: 20120825
  Serious: Yes (Death)
  Sender: FDA-Public Use
  Company Number: US-UCBSA-054350

PATIENT
  Age: 40 Year
  Sex: Male
  Weight: 91.63 kg

DRUGS (2)
  1. LACOSAMIDE [Suspect]
     Indication: EPILEPSY
     Route: 048
  2. ZONEGRAN [Concomitant]

REACTIONS (2)
  - CONVULSION [None]
  - SUDDEN UNEXPLAINED DEATH IN EPILEPSY [None]
